FAERS Safety Report 8994864 (Version 1)
Quarter: 2012Q4

REPORT INFORMATION
  Report Type: Spontaneous
  Country: JP (occurrence: None)
  Receive Date: 20121221
  Receipt Date: 20121221
  Transmission Date: 20130627
  Serious: Yes (Other)
  Sender: FDA-Public Use
  Company Number: TCI2012A07188

PATIENT
  Age: 82 Year
  Sex: Male

DRUGS (1)
  1. ROZEREM TABLETS 8MG (RAMELTEON) [Suspect]
     Route: 048
     Dates: start: 201110, end: 201111

REACTIONS (1)
  - Drug eruption [None]
